FAERS Safety Report 6736373-4 (Version None)
Quarter: 2010Q2

REPORT INFORMATION
  Report Type: 
  Country: None (occurrence: None)
  Receive Date: 20100521
  Receipt Date: 20100513
  Transmission Date: 20101027
  Serious: Yes (Other)
  Sender: FDA-Public Use
  Company Number: JNJCH-2010011977

PATIENT
  Age: 58 Year
  Sex: Female

DRUGS (6)
  1. REGAINE 2% [Suspect]
     Indication: ANDROGENETIC ALOPECIA
     Dosage: TEXT:UNSPECIFIED TWICE DAILY
     Route: 061
     Dates: start: 20090101, end: 20090101
  2. MINOXIDIL [Suspect]
     Indication: DRUG USE FOR UNKNOWN INDICATION
     Dosage: TEXT:UNSPECIFIED
     Route: 061
  3. DRUG, UNSPECIFIED [Concomitant]
     Indication: HYPERTENSION
     Dosage: TEXT:UNSPECIFIED
     Route: 065
  4. DRUG, UNSPECIFIED [Concomitant]
     Indication: BLOOD CHOLESTEROL
     Dosage: TEXT:UNSPECIFIED
     Route: 065
  5. DRUG, UNSPECIFIED [Concomitant]
     Indication: HYPERSENSITIVITY
     Dosage: TEXT:UNSPECIFIED
     Route: 065
  6. EUCERIN [Concomitant]
     Indication: DRUG USE FOR UNKNOWN INDICATION
     Dosage: TEXT:UNSPECIFIED
     Route: 061

REACTIONS (3)
  - BLISTER [None]
  - ECZEMA [None]
  - KELOID SCAR [None]
